FAERS Safety Report 10311032 (Version 3)
Quarter: 2014Q4

REPORT INFORMATION
  Report Type: Spontaneous
  Country: US (occurrence: US)
  Receive Date: 20140717
  Receipt Date: 20141014
  Transmission Date: 20150528
  Serious: Yes (Hospitalization)
  Sender: FDA-Public Use
  Company Number: US-BAYER-2014-106532

PATIENT
  Age: 33 Year
  Sex: Female
  Weight: 74.83 kg

DRUGS (2)
  1. MIRENA [Suspect]
     Active Substance: LEVONORGESTREL
     Indication: CONTRACEPTION
     Dosage: 20 MCG/24HR, CONT
     Route: 015
     Dates: start: 20120301, end: 20130920
  2. SYNTHROID [Concomitant]
     Active Substance: LEVOTHYROXINE SODIUM
     Indication: HYPOTHYROIDISM
     Dosage: UNK
     Dates: start: 2000

REACTIONS (7)
  - Medical device pain [None]
  - Anxiety [Not Recovered/Not Resolved]
  - Procedural pain [Not Recovered/Not Resolved]
  - Emotional distress [Not Recovered/Not Resolved]
  - Uterine perforation [None]
  - Injury [None]
  - Post procedural discomfort [Not Recovered/Not Resolved]

NARRATIVE: CASE EVENT DATE: 201307
